FAERS Safety Report 4290013-5 (Version None)
Quarter: 2004Q1

REPORT INFORMATION
  Report Type: 
  Country: None (occurrence: None)
  Receive Date: 20040206
  Receipt Date: 20040130
  Transmission Date: 20041129
  Serious: Yes (Hospitalization)
  Sender: FDA-Public Use
  Company Number: HQWYE512021JAN04

PATIENT
  Age: 19 Year
  Sex: Female

DRUGS (3)
  1. MINOCIN [Suspect]
     Indication: ACNE
     Dosage: ORAL
     Route: 048
  2. TRANSAMIN (TRANEXAMIC ACID) [Concomitant]
  3. CINAL (ASCORBIC ACID/CALCIUM PANTOTHENATE) [Concomitant]

REACTIONS (2)
  - MALAISE [None]
  - OCULAR ICTERUS [None]
